FAERS Safety Report 23037415 (Version 1)
Quarter: 2023Q4

REPORT INFORMATION
  Report Type: Spontaneous
  Country: US (occurrence: US)
  Receive Date: 20231006
  Receipt Date: 20231006
  Transmission Date: 20240110
  Serious: Yes (Other)
  Sender: FDA-Public Use
  Company Number: US-UCBSA-2023048004

PATIENT
  Sex: Female

DRUGS (1)
  1. CIMZIA [Suspect]
     Active Substance: CERTOLIZUMAB PEGOL
     Indication: Crohn^s disease
     Dosage: ONE SYRINGE EVERY OTHER WEEK

REACTIONS (3)
  - Crohn^s disease [Unknown]
  - Product temperature excursion issue [Unknown]
  - Wrong technique in product usage process [Unknown]
